FAERS Safety Report 8498068-9 (Version None)
Quarter: 2012Q3

REPORT INFORMATION
  Report Type: 
  Country: None (occurrence: None)
  Receive Date: 20120709
  Receipt Date: 20120618
  Transmission Date: 20120928
  Serious: No
  Sender: FDA-Public Use
  Company Number: US-AMGEN-USASP2012037678

PATIENT
  Age: 60 Year
  Sex: Female

DRUGS (6)
  1. ENBREL [Suspect]
     Indication: RHEUMATOID ARTHRITIS
     Dosage: 50 MG, 2 TIMES/WK
     Dates: start: 20110901
  2. ENBREL [Suspect]
     Indication: SYSTEMIC LUPUS ERYTHEMATOSUS
  3. ENBREL [Suspect]
     Indication: FIBROMYALGIA
  4. ENBREL [Suspect]
     Indication: PSORIATIC ARTHROPATHY
  5. ENBREL [Suspect]
     Indication: PSORIASIS
  6. ENBREL [Suspect]
     Indication: SJOGREN'S SYNDROME

REACTIONS (3)
  - ARTHRITIS [None]
  - PSORIASIS [None]
  - GAIT DISTURBANCE [None]
